FAERS Safety Report 7971780-3 (Version None)
Quarter: 2011Q4

REPORT INFORMATION
  Report Type: 
  Country: None (occurrence: None)
  Receive Date: 20111212
  Receipt Date: 20111206
  Transmission Date: 20120403
  Serious: Yes (Other)
  Sender: FDA-Public Use
  Company Number: US-SANOFI-AVENTIS-2011SA079930

PATIENT
  Sex: Female

DRUGS (2)
  1. LANTUS [Suspect]
     Indication: TYPE 2 DIABETES MELLITUS
     Dosage: DOSE:10 UNIT(S)
     Route: 058
     Dates: start: 20080101
  2. SOLOSTAR [Suspect]
     Dates: start: 20080101

REACTIONS (6)
  - VOMITING [None]
  - SPINAL FRACTURE [None]
  - BLOOD GLUCOSE INCREASED [None]
  - FALL [None]
  - POSTOPERATIVE ADHESION [None]
  - INJECTION SITE HAEMATOMA [None]
